FAERS Safety Report 8809621 (Version 1)
Quarter: 2012Q4

REPORT INFORMATION
  Report Type: 
  Country: US (occurrence: US)
  Receive Date: 20120926
  Receipt Date: 20120926
  Transmission Date: 20130627
  Serious: Yes (Other)
  Sender: FDA-Public Use
  Company Number: US-ROCHE-1104042

PATIENT
  Sex: Female

DRUGS (8)
  1. HERCEPTIN [Suspect]
     Indication: BREAST CANCER FEMALE
     Route: 065
  2. AVASTIN [Suspect]
     Indication: BREAST CANCER FEMALE
     Route: 065
  3. TAXOL [Concomitant]
  4. NAVELBINE [Concomitant]
  5. ETHYOL [Concomitant]
  6. NEULASTA [Concomitant]
  7. CARBOPLATIN [Concomitant]
  8. GEMZAR [Concomitant]

REACTIONS (3)
  - Neoplasm recurrence [Unknown]
  - Dyspnoea [Unknown]
  - Metastases to chest wall [Unknown]
